FAERS Safety Report 9234365 (Version 1)
Quarter: 2013Q2

REPORT INFORMATION
  Report Type: Other
  Country: DE (occurrence: DE)
  Receive Date: 20130416
  Receipt Date: 20130416
  Transmission Date: 20140414
  Serious: Yes (Life-Threatening, Hospitalization)
  Sender: FDA-Public Use
  Company Number: DE-WATSON-2013-06525

PATIENT
  Age: 33 Year
  Sex: Male

DRUGS (4)
  1. FLUOXETINE HYDROCHLORIDE (UNKNOWN) [Suspect]
     Indication: DEPRESSION
     Dosage: 40 MG, UNKNOWN
     Route: 065
     Dates: start: 201102, end: 201106
  2. PRIMIDONE (WATSON LABORATORIES) [Suspect]
     Indication: ESSENTIAL TREMOR
     Dosage: UNK, UNKNOWN
     Route: 065
     Dates: start: 201103
  3. PAROXETINE [Concomitant]
     Indication: PRODUCT USED FOR UNKNOWN INDICATION
     Dosage: 20 MG, UNKNOWN
     Route: 065
     Dates: start: 200712, end: 2010
  4. OPIPRAMOL [Concomitant]
     Indication: RESTLESSNESS
     Dosage: UNK, UNKNOWN
     Route: 065

REACTIONS (1)
  - Suicidal ideation [Unknown]
